FAERS Safety Report 11699898 (Version 6)
Quarter: 2018Q4

REPORT INFORMATION
  Report Type: Report from Study
  Country: DE (occurrence: DE)
  Receive Date: 20151105
  Receipt Date: 20181120
  Transmission Date: 20190204
  Serious: Yes (Hospitalization)
  Sender: FDA-Public Use
  Company Number: DE-ROCHE-1652602

PATIENT
  Age: 54 Year
  Sex: Male
  Weight: 76.3 kg

DRUGS (17)
  1. DECORTIN H [Concomitant]
     Active Substance: PREDNISOLONE
     Route: 048
     Dates: start: 20151002, end: 20151015
  2. RITUXIMAB. [Suspect]
     Active Substance: RITUXIMAB
     Indication: PEMPHIGUS
     Dosage: DATE OF MOST RECENT DOSE ON 24/SEP/2015 OF BLINDED RITUXIMAB PRIOR TO AE AND START TIME 10.50
     Route: 042
     Dates: start: 20150910
  3. DECORTIN H [Concomitant]
     Active Substance: PREDNISOLONE
     Route: 048
     Dates: start: 20151016, end: 20151029
  4. PLACEBO [Suspect]
     Active Substance: UNSPECIFIED INGREDIENT
     Indication: PEMPHIGUS
     Dosage: DATE OF MOST RECENT DOSE ON 26/OCT/2015 OF BLINDED MYCOPHENOLATE MOFETIL PRIOR TO AE AND START TIME
     Route: 048
     Dates: start: 20150910
  5. DECORTIN H [Concomitant]
     Active Substance: PREDNISOLONE
     Indication: PEMPHIGUS
     Route: 048
     Dates: start: 20150925, end: 20151001
  6. IDEOS [Concomitant]
     Active Substance: CALCIUM CARBONATE\CHOLECALCIFEROL
     Route: 048
     Dates: start: 20150618
  7. CELLCEPT [Concomitant]
     Active Substance: MYCOPHENOLATE MOFETIL\MYCOPHENOLATE MOFETIL HYDROCHLORIDE
     Indication: PEMPHIGUS
     Route: 048
     Dates: start: 201205, end: 201409
  8. DERMATOP [Concomitant]
     Active Substance: PREDNICARBATE
     Indication: PEMPHIGUS
     Dosage: DOSE UNIT: UNKNOWN
     Route: 061
     Dates: start: 20150910, end: 20160407
  9. CLOBETASOL [Concomitant]
     Active Substance: CLOBETASOL
     Indication: PEMPHIGUS
     Dosage: DOSE UNIT: OTHER
     Route: 058
     Dates: start: 20150901, end: 20151024
  10. CEFUROXIM [Concomitant]
     Active Substance: CEFUROXIME
     Route: 042
     Dates: start: 20151027, end: 20151101
  11. IBUPROFEN. [Concomitant]
     Active Substance: IBUPROFEN
     Route: 048
     Dates: start: 20151102, end: 20151109
  12. CEFUROXIM [Concomitant]
     Active Substance: CEFUROXIME
     Route: 048
     Dates: start: 20151102, end: 20151109
  13. DECORTIN H [Concomitant]
     Active Substance: PREDNISOLONE
     Route: 048
     Dates: start: 20151030, end: 20151113
  14. STOMATITIS SOLUTION (DEXPANTHENOL/GLYCEROL/KAMILLOSAN/LIDOCAINE HCL/SO [Concomitant]
     Indication: PEMPHIGUS
     Route: 061
     Dates: start: 20150618, end: 20160104
  15. MONO-EMBOLEX [Concomitant]
     Active Substance: CERTOPARIN SODIUM
     Route: 058
     Dates: start: 20151027, end: 20151109
  16. PANTOZOL [Concomitant]
     Active Substance: PANTOPRAZOLE SODIUM
     Route: 048
     Dates: start: 20150618
  17. VOLON A OINTMENT (GERMANY) [Concomitant]
     Indication: PEMPHIGUS
     Route: 061
     Dates: start: 20150910, end: 20151101

REACTIONS (1)
  - Bursitis infective [Recovered/Resolved]

NARRATIVE: CASE EVENT DATE: 20151026
